FAERS Safety Report 5726097-4 (Version None)
Quarter: 2008Q2

REPORT INFORMATION
  Report Type: 
  Country: None (occurrence: None)
  Receive Date: 20080501
  Receipt Date: 20080501
  Transmission Date: 20081010
  Serious: Yes (Life-Threatening, Other)
  Sender: FDA-Public Use
  Company Number: None

PATIENT
  Age: 88 Year
  Sex: Female
  Weight: 60.3284 kg

DRUGS (1)
  1. DIGITEK   0.125MG  BARTEK [Suspect]
     Indication: CARDIAC DISORDER
     Dosage: ONE TABLET DAILY, IN MORNING  PO
     Route: 048
     Dates: start: 20080331, end: 20080428

REACTIONS (10)
  - BLOOD TEST ABNORMAL [None]
  - CHILLS [None]
  - COUGH [None]
  - DIZZINESS [None]
  - DYSPNOEA [None]
  - MITRAL VALVE INCOMPETENCE [None]
  - MITRAL VALVE PROLAPSE [None]
  - NAUSEA [None]
  - PHARMACEUTICAL PRODUCT COMPLAINT [None]
  - TREMOR [None]
